FAERS Safety Report 8059248-X (Version None)
Quarter: 2012Q1

REPORT INFORMATION
  Report Type: 
  Country: None (occurrence: None)
  Receive Date: 20120112
  Receipt Date: 20120102
  Transmission Date: 20120608
  Serious: Yes (Other)
  Sender: FDA-Public Use
  Company Number: 1000026755

PATIENT
  Age: 76 Year
  Sex: Female

DRUGS (2)
  1. MEMANTINE HYDROCHLORIDE [Suspect]
     Dosage: 5 MG (5 MG, 1 IN 1 D)
     Dates: start: 20111117, end: 20111118
  2. METFORMINE (METFORMIN HYDROCHLORIDE) (METFORMIN HYDROCHLORIDE) [Concomitant]

REACTIONS (4)
  - JAUNDICE [None]
  - TRANSAMINASES INCREASED [None]
  - VOMITING [None]
  - GAMMA-GLUTAMYLTRANSFERASE INCREASED [None]
